FAERS Safety Report 6445670-1 (Version None)
Quarter: 2009Q4

REPORT INFORMATION
  Report Type: 
  Country: None (occurrence: None)
  Receive Date: 20091118
  Receipt Date: 20091118
  Transmission Date: 20100525
  Serious: Yes (Other)
  Sender: FDA-Public Use
  Company Number: None

PATIENT
  Age: 45 Year
  Sex: Male
  Weight: 91.63 kg

DRUGS (1)
  1. INTERFERON BETA-1A [Suspect]
     Dosage: 30 MCG QWEEK, IM
     Route: 030
     Dates: start: 20090707, end: 20090707

REACTIONS (6)
  - CHEST DISCOMFORT [None]
  - CHOKING SENSATION [None]
  - DYSPNOEA [None]
  - MIDDLE INSOMNIA [None]
  - PHARYNGEAL OEDEMA [None]
  - TACHYCARDIA [None]
